FAERS Safety Report 23407722 (Version 1)
Quarter: 2024Q1

REPORT INFORMATION
  Report Type: Spontaneous
  Country: US (occurrence: US)
  Receive Date: 20240117
  Receipt Date: 20240117
  Transmission Date: 20240410
  Serious: No
  Sender: FDA-Public Use
  Company Number: US-BIOGEN-2024BI01244991

PATIENT
  Age: 76 Year
  Sex: Female

DRUGS (2)
  1. VUMERITY [Suspect]
     Active Substance: DIROXIMEL FUMARATE
     Indication: Multiple sclerosis
     Dosage: TITRATION: TWICE A DAY FOR SEVEN DAYS
     Route: 050
     Dates: start: 20220110, end: 20220126
  2. VUMERITY [Suspect]
     Active Substance: DIROXIMEL FUMARATE
     Dosage: MAINTENANCE: TWO PILLS, TWICE A DAY. (FOUR PILLS TOTAL)
     Route: 050

REACTIONS (3)
  - Illness [Unknown]
  - Multiple sclerosis [Unknown]
  - Feeling abnormal [Unknown]

NARRATIVE: CASE EVENT DATE: 20240101
